FAERS Safety Report 7297024-6 (Version None)
Quarter: 2011Q1

REPORT INFORMATION
  Report Type: 
  Country: None (occurrence: None)
  Receive Date: 20110216
  Receipt Date: 20110118
  Transmission Date: 20110831
  Serious: No
  Sender: FDA-Public Use
  Company Number: US-B.I. PHARMACEUTICALS,INC./RIDGEFIELD-2007-BP-07646BP

PATIENT
  Age: 69 Year
  Sex: Female

DRUGS (5)
  1. LISINOPRIL [Concomitant]
  2. COMBIVENT [Suspect]
     Indication: CHRONIC OBSTRUCTIVE PULMONARY DISEASE
     Dosage: 8 PUF
     Route: 055
     Dates: start: 20010101
  3. FUROSEMIDE [Concomitant]
  4. ALBUTEROL [Concomitant]
  5. AMLODIPINE BESYLATE [Concomitant]

REACTIONS (3)
  - THROAT IRRITATION [None]
  - CHEST DISCOMFORT [None]
  - DYSGEUSIA [None]
